FAERS Safety Report 6619791-4 (Version None)
Quarter: 2010Q1

REPORT INFORMATION
  Report Type: 
  Country: None (occurrence: None)
  Receive Date: 20100309
  Receipt Date: 20100301
  Transmission Date: 20100710
  Serious: Yes (Hospitalization)
  Sender: FDA-Public Use
  Company Number: PHHY2010AT12045

PATIENT
  Age: 74 Year
  Sex: Female

DRUGS (1)
  1. EXELON [Suspect]
     Dosage: 24 MG, ONCE/SINGLE
     Route: 048

REACTIONS (9)
  - ACCIDENTAL OVERDOSE [None]
  - CHOLINERGIC SYNDROME [None]
  - CONFUSIONAL STATE [None]
  - DIZZINESS [None]
  - EXTRASYSTOLES [None]
  - HYPERTENSION [None]
  - NAUSEA [None]
  - VERTIGO [None]
  - VOMITING [None]
